FAERS Safety Report 5141864-6 (Version None)
Quarter: 2006Q4

REPORT INFORMATION
  Report Type: 
  Country: None (occurrence: None)
  Receive Date: 20061027
  Receipt Date: 20060804
  Transmission Date: 20070319
  Serious: No
  Sender: FDA-Public Use
  Company Number: 34984

PATIENT
  Age: 89 Year
  Sex: Female

DRUGS (8)
  1. TOBRAMYCIN-DEXAMETHASONE [Suspect]
     Dosage: OPHT
     Route: 047
  2. TROPICAMIDE [Concomitant]
  3. INDOMETHACIN [Concomitant]
  4. EPOETIN BETA [Concomitant]
  5. RAMIPRIL [Concomitant]
  6. FUROSEMIDE [Concomitant]
  7. FERROUS SULFATE TAB [Concomitant]
  8. ALLOPURINOL [Concomitant]

REACTIONS (2)
  - CONDITION AGGRAVATED [None]
  - RENAL FAILURE [None]
